FAERS Safety Report 4325306-6 (Version None)
Quarter: 2004Q1

REPORT INFORMATION
  Report Type: 
  Country: None (occurrence: None)
  Receive Date: 20040323
  Receipt Date: 20040312
  Transmission Date: 20041129
  Serious: Yes (Hospitalization)
  Sender: FDA-Public Use
  Company Number: 2003142791JP

PATIENT
  Age: 23 Year
  Sex: Male
  Weight: 44 kg

DRUGS (11)
  1. GENOTROPIN [Suspect]
     Indication: HYPOPITUITARISM
     Dosage: 0.1 MG, QD; SUBCUTANEOUS (SEE IMAGE)
     Route: 058
     Dates: start: 20020521, end: 20020617
  2. GENOTROPIN [Suspect]
     Indication: HYPOPITUITARISM
     Dosage: 0.1 MG, QD; SUBCUTANEOUS (SEE IMAGE)
     Route: 058
     Dates: start: 20020618, end: 20020715
  3. GENOTROPIN [Suspect]
     Indication: HYPOPITUITARISM
     Dosage: 0.1 MG, QD; SUBCUTANEOUS (SEE IMAGE)
     Route: 058
     Dates: start: 20020716, end: 20021104
  4. GENOTROPIN [Suspect]
     Indication: HYPOPITUITARISM
     Dosage: 0.1 MG, QD; SUBCUTANEOUS (SEE IMAGE)
     Route: 058
     Dates: start: 20021105, end: 20030113
  5. CORTONE [Concomitant]
  6. LEVOTHYROXINE SODIUM [Concomitant]
  7. DESMOPRESSIN ACETATE [Concomitant]
  8. DIFLUPREDNATE [Concomitant]
  9. HIRUDOID (HEPARINOID) [Concomitant]
  10. TERNELIN (TIZANIDINE HYDROCHLORIDE) [Concomitant]
  11. LOXONIN (LOXOPROFEN SODIUM) [Concomitant]

REACTIONS (4)
  - ECZEMA NUMMULAR [None]
  - GERM CELL CANCER [None]
  - NEOPLASM RECURRENCE [None]
  - SPINAL CORD DISORDER [None]
